FAERS Safety Report 8474778-4 (Version None)
Quarter: 2012Q2

REPORT INFORMATION
  Report Type: 
  Country: None (occurrence: None)
  Receive Date: 20120628
  Receipt Date: 20120614
  Transmission Date: 20120825
  Serious: Yes (Other)
  Sender: FDA-Public Use
  Company Number: JP-PFIZER INC-2012151731

PATIENT
  Age: 73 Year
  Sex: Male

DRUGS (1)
  1. PIPERACILLIN AND TAZOBACTAM [Suspect]
     Dosage: 6.75 G DAILY
     Route: 041
     Dates: start: 20120517, end: 20120518

REACTIONS (2)
  - RENAL DISORDER [None]
  - DRUG-INDUCED LIVER INJURY [None]
